FAERS Safety Report 6015251-2 (Version None)
Quarter: 2008Q4

REPORT INFORMATION
  Report Type: 
  Country: None (occurrence: None)
  Receive Date: 20081222
  Receipt Date: 20081215
  Transmission Date: 20090506
  Serious: Yes (Death)
  Sender: FDA-Public Use
  Company Number: US-PFIZER INC-2008153707

PATIENT
  Age: 52 Year
  Sex: Female

DRUGS (5)
  1. GABAPENTIN [Suspect]
  2. ALPRAZOLAM [Suspect]
  3. ZOLPIDEM [Suspect]
  4. ACETAMINOPHEN/DIPHENHYDRAMINE [Suspect]
  5. HYDROCODONE BITARTRATE + ACETAMINOPHEN [Suspect]

REACTIONS (1)
  - COMPLETED SUICIDE [None]
